FAERS Safety Report 8466280 (Version 2)
Quarter: 2013Q4

REPORT INFORMATION
  Report Type: Spontaneous
  Country: DE (occurrence: DE)
  Receive Date: 20120319
  Receipt Date: 20131230
  Transmission Date: 20140711
  Serious: Yes (Hospitalization, Congenital Anomaly, Other)
  Sender: FDA-Public Use
  Company Number: DE-TEVA-326528GER

PATIENT
  Age: 0 Day
  Sex: Male

DRUGS (7)
  1. AMITRIPTYLINE [Suspect]
     Route: 064
  2. TILIDINE/NALOXONE [Suspect]
     Route: 064
  3. FEMIBION 800 [Concomitant]
     Route: 064
  4. CLAVERSAL [Concomitant]
     Route: 064
  5. MCP INFUSIONSLOESUNG [Concomitant]
     Route: 064
  6. MESALAZIN [Concomitant]
     Route: 064
  7. INSULIN [Concomitant]
     Route: 064

REACTIONS (4)
  - Myoclonus [Recovering/Resolving]
  - Convulsion neonatal [Recovered/Resolved]
  - Congenital choroid plexus cyst [Unknown]
  - Cyst [Unknown]
